FAERS Safety Report 7998246-9 (Version None)
Quarter: 2011Q4

REPORT INFORMATION
  Report Type: 
  Country: None (occurrence: None)
  Receive Date: 20111221
  Receipt Date: 20110516
  Transmission Date: 20120403
  Serious: No
  Sender: FDA-Public Use
  Company Number: US-GLAXOSMITHKLINE-A0927528A

PATIENT
  Age: 49 Year
  Sex: Female

DRUGS (2)
  1. BENAZEPRIL HYDROCHLORIDE [Concomitant]
  2. LOVAZA [Suspect]
     Indication: BLOOD TRIGLYCERIDES INCREASED
     Dosage: 2CAP TWICE PER DAY
     Route: 048
     Dates: start: 20101001

REACTIONS (11)
  - ASTHENIA [None]
  - BACK PAIN [None]
  - MUSCULOSKELETAL CHEST PAIN [None]
  - CONSTIPATION [None]
  - MUSCULOSKELETAL PAIN [None]
  - MALAISE [None]
  - MUSCLE SPASMS [None]
  - FEELING HOT [None]
  - DEPRESSED MOOD [None]
  - JOINT SWELLING [None]
  - MUSCULOSKELETAL STIFFNESS [None]
